FAERS Safety Report 17256238 (Version 2)
Quarter: 2020Q3

REPORT INFORMATION
  Report Type: Spontaneous
  Country: US (occurrence: US)
  Receive Date: 20200110
  Receipt Date: 20200909
  Transmission Date: 20201102
  Serious: Yes (Hospitalization, Other)
  Sender: FDA-Public Use
  Company Number: US-AUROBINDO-AUR-APL-2020-001369

PATIENT
  Age: 56 Year
  Sex: Female

DRUGS (3)
  1. CLOZAPINE. [Suspect]
     Active Substance: CLOZAPINE
     Indication: SCHIZOPHRENIA
     Dosage: UNK
     Route: 065
  2. CLOZAPINE. [Interacting]
     Active Substance: CLOZAPINE
     Dosage: 350 MILLIGRAM, TITRATED DOSE
  3. PRAMIPEXOLE. [Interacting]
     Active Substance: PRAMIPEXOLE
     Indication: RESTLESS LEGS SYNDROME
     Dosage: 0.5 MILLIGRAM, DAILY
     Route: 065

REACTIONS (3)
  - Psychotic disorder [Recovered/Resolved]
  - Drug interaction [Unknown]
  - Schizophrenia [Recovered/Resolved]
